FAERS Safety Report 13152932 (Version 2)
Quarter: 2017Q1

REPORT INFORMATION
  Report Type: Report from Study
  Country: US (occurrence: US)
  Receive Date: 20170126
  Receipt Date: 20170201
  Transmission Date: 20170428
  Serious: Yes (Hospitalization, Other)
  Sender: FDA-Public Use
  Company Number: US-AMGEN-USANI2017012004

PATIENT
  Age: 55 Year
  Sex: Male

DRUGS (3)
  1. NEUPOGEN [Suspect]
     Active Substance: FILGRASTIM
     Dosage: 2 SHOTS, QWK
     Route: 065
     Dates: start: 2014
  2. NEUPOGEN [Suspect]
     Active Substance: FILGRASTIM
     Indication: NEUTROPENIA
     Dosage: UNK
     Route: 065
  3. NEUPOGEN [Suspect]
     Active Substance: FILGRASTIM
     Dosage: UNK
     Route: 065
     Dates: start: 2012

REACTIONS (6)
  - Pathogen resistance [Not Recovered/Not Resolved]
  - Unevaluable event [Unknown]
  - Infection [Not Recovered/Not Resolved]
  - Skin infection [Not Recovered/Not Resolved]
  - Loose tooth [Not Recovered/Not Resolved]
  - Oral infection [Not Recovered/Not Resolved]
